FAERS Safety Report 9174108 (Version 1)
Quarter: 2013Q1

REPORT INFORMATION
  Report Type: Spontaneous
  Country: US (occurrence: US)
  Receive Date: 20130320
  Receipt Date: 20130320
  Transmission Date: 20140127
  Serious: Yes (Other)
  Sender: FDA-Public Use
  Company Number: US-PFIZER INC-2013091153

PATIENT
  Age: 53 Year
  Sex: Male
  Weight: 87.1 kg

DRUGS (7)
  1. PHENYTOIN [Suspect]
     Indication: CONVULSION
     Dosage: UNK
  2. PHENYTOIN [Suspect]
     Indication: BIPOLAR DISORDER
  3. HYDROCHLOROTHIAZIDE [Concomitant]
     Indication: BLOOD PRESSURE ABNORMAL
     Dosage: UNK
  4. NEXIUM [Concomitant]
     Indication: DYSPEPSIA
     Dosage: UNK
  5. NEXIUM [Concomitant]
     Indication: OESOPHAGEAL DISORDER
  6. NEURONTIN [Concomitant]
     Dosage: 300 MG, 2X/DAY
  7. PHENOBARBITAL [Concomitant]
     Dosage: 100 MG, UNK

REACTIONS (3)
  - Convulsion [Unknown]
  - Hypersensitivity [Unknown]
  - Pruritus [Unknown]
